FAERS Safety Report 6258467-2 (Version None)
Quarter: 2009Q3

REPORT INFORMATION
  Report Type: 
  Country: None (occurrence: None)
  Receive Date: 20090707
  Receipt Date: 20090625
  Transmission Date: 20100115
  Serious: Yes (Hospitalization)
  Sender: FDA-Public Use
  Company Number: JP-PFIZER INC-2009233295

PATIENT
  Age: 53 Year

DRUGS (3)
  1. FARMORUBICIN [Suspect]
     Indication: UTERINE CANCER
     Dosage: 60 MG
     Dates: start: 20090210, end: 20090426
  2. RANDA [Concomitant]
     Dosage: UNK
     Route: 042
     Dates: start: 20090204, end: 20090426
  3. IFOMIDE [Concomitant]
     Dosage: UNK
     Route: 042
     Dates: start: 20090204, end: 20090423

REACTIONS (1)
  - INTERSTITIAL LUNG DISEASE [None]
